FAERS Safety Report 4544481-1 (Version None)
Quarter: 2004Q4

REPORT INFORMATION
  Report Type: 
  Country: None (occurrence: None)
  Receive Date: 20041230
  Receipt Date: 20030707
  Transmission Date: 20050328
  Serious: Yes (Other)
  Sender: FDA-Public Use
  Company Number: 200410545BBE

PATIENT
  Sex: Female

DRUGS (2)
  1. HYPRHO-D [Suspect]
     Indication: PREGNANCY
     Dates: start: 19941216
  2. THIMEROSAL [Suspect]

REACTIONS (2)
  - ADVERSE EVENT [None]
  - DRUG EXPOSURE DURING PREGNANCY [None]
